FAERS Safety Report 9762798 (Version 2)
Quarter: 2014Q1

REPORT INFORMATION
  Report Type: Spontaneous
  Country: US (occurrence: US)
  Receive Date: 20131216
  Receipt Date: 20140102
  Transmission Date: 20141002
  Serious: Yes (Hospitalization, Other)
  Sender: FDA-Public Use
  Company Number: US-VERTEX PHARMACEUTICALS INC-2013-011741

PATIENT
  Age: 46 Year
  Sex: 0

DRUGS (4)
  1. INCIVEK [Suspect]
     Indication: HEPATITIS C
     Dosage: 750 MG, TID
     Route: 048
     Dates: start: 20120420
  2. PEGYLATED INTERFERON ALFA-2A [Suspect]
     Indication: HEPATITIS C
     Dosage: 180 ?G, QD
     Route: 058
     Dates: start: 20120420, end: 2012
  3. RIBAVIRIN [Suspect]
     Indication: HEPATITIS C
     Dosage: 400 MG QAM, 600 MG QPM
     Dates: start: 20120420, end: 2012
  4. RIBAVIRIN [Suspect]
     Dosage: 400 MG QAM, 200 MG QPM
     Dates: start: 20120519

REACTIONS (5)
  - Urosepsis [Unknown]
  - Pyelonephritis [Unknown]
  - Renal failure acute [Unknown]
  - Anaemia [Unknown]
  - Off label use [Unknown]
